FAERS Safety Report 8941967 (Version 1)
Quarter: 2012Q4

REPORT INFORMATION
  Report Type: 
  Country: IT (occurrence: IT)
  Receive Date: 20121203
  Receipt Date: 20121203
  Transmission Date: 20130627
  Serious: Yes (Other)
  Sender: FDA-Public Use
  Company Number: IT-JNJFOC-20121113158

PATIENT
  Age: 36 Year
  Sex: Female

DRUGS (1)
  1. REMICADE [Suspect]
     Indication: CROHN^S DISEASE
     Dosage: strength 100 mg
     Route: 042
     Dates: start: 20121121, end: 20121121

REACTIONS (2)
  - Rash [Recovered/Resolved]
  - Tachycardia [Recovered/Resolved]
